FAERS Safety Report 9211039 (Version 3)
Quarter: 2013Q3

REPORT INFORMATION
  Report Type: Report from Study
  Country: CA (occurrence: CA)
  Receive Date: 20130404
  Receipt Date: 20130806
  Transmission Date: 20140515
  Serious: Yes (Hospitalization)
  Sender: FDA-Public Use
  Company Number: CA-ABBOTT-13P-028-1071372-00

PATIENT
  Sex: Male

DRUGS (2)
  1. LUPRON DEPOT [Suspect]
     Indication: PROSTATE CANCER
     Route: 030
     Dates: start: 20070322, end: 20121124
  2. LUPRON DEPOT [Suspect]

REACTIONS (10)
  - Throat tightness [Unknown]
  - Haemoglobin decreased [Unknown]
  - Gastric mucosal lesion [Unknown]
  - Faeces discoloured [Recovered/Resolved]
  - Dyspnoea exertional [Not Recovered/Not Resolved]
  - Gastrointestinal haemorrhage [Unknown]
  - Peptic ulcer [Unknown]
  - Cough [Unknown]
  - Chronic obstructive pulmonary disease [Unknown]
  - Cardiac failure congestive [Unknown]
